FAERS Safety Report 6114381-4 (Version None)
Quarter: 2009Q1

REPORT INFORMATION
  Report Type: 
  Country: None (occurrence: None)
  Receive Date: 20090313
  Receipt Date: 20090310
  Transmission Date: 20090719
  Serious: Yes (Other)
  Sender: FDA-Public Use
  Company Number: FR-JNJFOC-20090302314

PATIENT
  Age: 64 Year
  Sex: Male

DRUGS (3)
  1. TAVANIC [Suspect]
     Route: 048
  2. TAVANIC [Suspect]
     Indication: DRUG USE FOR UNKNOWN INDICATION
     Route: 048
  3. BUDESONIDE [Concomitant]
     Indication: LUNG DISORDER
     Route: 055

REACTIONS (4)
  - DRUG ADMINISTRATION ERROR [None]
  - FALL [None]
  - INTENTIONAL DRUG MISUSE [None]
  - TENDON RUPTURE [None]
